FAERS Safety Report 16591325 (Version 1)
Quarter: 2019Q3

REPORT INFORMATION
  Report Type: Spontaneous
  Country: DE (occurrence: DE)
  Receive Date: 20190718
  Receipt Date: 20190718
  Transmission Date: 20191004
  Serious: Yes (Other)
  Sender: FDA-Public Use
  Company Number: DE-PFIZER INC-2019301658

PATIENT
  Age: 93 Year
  Sex: Male

DRUGS (8)
  1. MELPERON [Suspect]
     Active Substance: MELPERONE
     Dosage: 5 ML, AS NEEDED
     Route: 048
  2. TRIAMCINOLONE [Concomitant]
     Active Substance: TRIAMCINOLONE
     Dosage: UNK, 1XDAY (1-0-0)
     Route: 003
  3. LISINOPRIL. [Suspect]
     Active Substance: LISINOPRIL
     Dosage: 20 MG, 1X/DAY (1-0-0)
     Route: 048
  4. ASPIRIN. [Concomitant]
     Active Substance: ASPIRIN
     Dosage: 100 MG, 1X/DAY (1-0-0)
     Route: 048
  5. HCT [Suspect]
     Active Substance: HYDROCHLOROTHIAZIDE
     Dosage: 12.5 MG, 1X/DAY (1-0-0)
     Route: 048
  6. DECODERM [Concomitant]
     Active Substance: FLUPREDNIDENE ACETATE
     Dosage: UNK, 1XDAY (1-0-0)
     Route: 003
  7. AMLODIPINE BESILATE [Suspect]
     Active Substance: AMLODIPINE BESYLATE
     Dosage: 5 MG, 1X/DAY (1-0-0)
     Route: 048
  8. NOVALGIN (METAMIZOLE SODIUM) [Concomitant]
     Active Substance: METAMIZOLE SODIUM
     Dosage: 500 MG, AS NEEDED
     Route: 048

REACTIONS (4)
  - Syncope [Recovered/Resolved]
  - Fall [Recovered/Resolved]
  - Brain contusion [Recovered/Resolved]
  - Dizziness [Recovered/Resolved]
